FAERS Safety Report 10445558 (Version 1)
Quarter: 2014Q3

REPORT INFORMATION
  Report Type: Spontaneous
  Country: US (occurrence: US)
  Receive Date: 20140908
  Receipt Date: 20140908
  Transmission Date: 20150326
  Serious: No
  Sender: FDA-Public Use
  Company Number: US-BRISTOL-MYERS SQUIBB COMPANY-20723193

PATIENT
  Age: 5 Decade
  Sex: Female

DRUGS (1)
  1. ABILIFY [Suspect]
     Active Substance: ARIPIPRAZOLE
     Indication: DEPRESSION
     Dosage: DOSE WAS GRADUALLY INCREASED TO 15 MG DAILY
     Dates: start: 2013

REACTIONS (1)
  - Tremor [Recovered/Resolved]
